FAERS Safety Report 5765945-9 (Version None)
Quarter: 2008Q2

REPORT INFORMATION
  Report Type: 
  Country: None (occurrence: None)
  Receive Date: 20080611
  Receipt Date: 20071003
  Transmission Date: 20081010
  Serious: No
  Sender: FDA-Public Use
  Company Number: US-BRISTOL-MYERS SQUIBB COMPANY-13966692

PATIENT

DRUGS (2)
  1. CARBIDOPA + LEVODOPA [Suspect]
     Dosage: DOSAGE FORM: TABLET
     Route: 048
  2. VITAMIN C TABS [Suspect]
     Dosage: DOSAGE FORM: TABLET

REACTIONS (2)
  - MEDICATION ERROR [None]
  - NO ADVERSE EVENT [None]
